FAERS Safety Report 13064191 (Version 3)
Quarter: 2017Q3

REPORT INFORMATION
  Report Type: Spontaneous
  Country: NO (occurrence: NO)
  Receive Date: 20161227
  Receipt Date: 20170818
  Transmission Date: 20171127
  Serious: Yes (Congenital Anomaly)
  Sender: FDA-Public Use
  Company Number: PHHY2016NO172130

PATIENT
  Sex: Male

DRUGS (3)
  1. TRILEPTAL [Suspect]
     Active Substance: OXCARBAZEPINE
     Indication: FOETAL EXPOSURE DURING PREGNANCY
     Dosage: PATIENT^S MOTHER DOSE: 600 MG, BID
     Route: 064
  2. ORFIRIL RETARD [Suspect]
     Active Substance: VALPROIC ACID
     Indication: FOETAL EXPOSURE DURING PREGNANCY
     Dosage: PATIENT^S MOTHER DOSE: 600 PLUS 900 MG, QD (1500 MG, QD)
     Route: 064
  3. FOLIC ACID. [Concomitant]
     Active Substance: FOLIC ACID
     Indication: FOETAL EXPOSURE DURING PREGNANCY
     Dosage: PATIENT^S MOTHER DOSE: 4 X 0.4 MG FOLIC ACID TABLETS DAILY
     Route: 064

REACTIONS (7)
  - Autism spectrum disorder [Unknown]
  - Seizure [Unknown]
  - Speech disorder developmental [Unknown]
  - Foetal exposure during pregnancy [Recovered/Resolved]
  - Excessive eye blinking [Unknown]
  - Congenital musculoskeletal anomaly [Unknown]
  - Foot deformity [Unknown]

NARRATIVE: CASE EVENT DATE: 2002
